FAERS Safety Report 5824339-8 (Version None)
Quarter: 2008Q3

REPORT INFORMATION
  Report Type: 
  Country: None (occurrence: None)
  Receive Date: 20080728
  Receipt Date: 20080718
  Transmission Date: 20090109
  Serious: Yes (Disabling)
  Sender: FDA-Public Use
  Company Number: FR-WYE-G01885008

PATIENT
  Sex: Female

DRUGS (13)
  1. EFFEXOR [Suspect]
     Dosage: UNKNOWN
     Route: 048
  2. VASTAREL [Suspect]
     Dosage: UNKNOWN
     Route: 048
  3. PROPOXYPHENE HCL AND ACETAMINOPHEN [Suspect]
     Dosage: UNKNOWN
     Route: 048
  4. VIDAZA [Suspect]
     Indication: ACUTE MYELOID LEUKAEMIA
     Dosage: 130 MG TOTAL DAILY
     Route: 058
     Dates: start: 20080506, end: 20080512
  5. VIDAZA [Suspect]
     Dosage: 130 MG TOTAL DAILY
     Route: 058
     Dates: start: 20080610
  6. LEVOTHYROX [Concomitant]
     Dosage: UNKNOWN
     Route: 048
  7. FLUDEX [Concomitant]
     Dosage: UNKNOWN
     Route: 048
  8. FLECTOR [Concomitant]
     Dosage: UNKNOWN
  9. VESANOID [Suspect]
     Indication: ACUTE MYELOID LEUKAEMIA
     Dosage: 45 MG/M^2/DAY
     Route: 048
     Dates: start: 20080513, end: 20080602
  10. VESANOID [Suspect]
     Dosage: 45 MG/M^2/DAY
     Route: 048
     Dates: start: 20080601
  11. DEPAKENE [Suspect]
     Indication: ACUTE MYELOID LEUKAEMIA
     Route: 048
     Dates: start: 20080506, end: 20080512
  12. DEPAKENE [Suspect]
     Route: 048
     Dates: start: 20080610
  13. TEMESTA [Suspect]
     Dosage: UNKNOWN
     Route: 048

REACTIONS (6)
  - CONFUSIONAL STATE [None]
  - ENCEPHALOPATHY [None]
  - PARKINSONIAN GAIT [None]
  - PSYCHOMOTOR RETARDATION [None]
  - SOMNOLENCE [None]
  - TREMOR [None]
